FAERS Safety Report 8259156-5 (Version None)
Quarter: 2012Q2

REPORT INFORMATION
  Report Type: 
  Country: None (occurrence: None)
  Receive Date: 20120404
  Receipt Date: 20120327
  Transmission Date: 20120825
  Serious: Yes (Other)
  Sender: FDA-Public Use
  Company Number: CHPA2012US005766

PATIENT
  Age: 71 Year
  Sex: Female

DRUGS (7)
  1. PREVACID 24 HR [Suspect]
     Indication: DYSPEPSIA
     Dosage: 15MG A DAY FOR 14 DAYS
     Route: 048
     Dates: start: 20110801, end: 20110801
  2. PREVACID 24 HR [Interacting]
     Dosage: 15 MG A DAY FOR 2 DAYS
     Route: 048
     Dates: start: 20120101, end: 20120101
  3. SOTALOL HCL [Interacting]
     Indication: ARRHYTHMIA
     Dosage: UNK, UNK
     Route: 065
  4. DIOVAN [Concomitant]
  5. LEVOTHYROXINE SODIUM [Concomitant]
  6. SIMVASTATIN [Concomitant]
  7. PREVACID 24 HR [Interacting]
     Dosage: 15 MG A DAY
     Route: 048
     Dates: start: 20111101, end: 20111101

REACTIONS (6)
  - OFF LABEL USE [None]
  - DRUG INTERACTION [None]
  - CONCOMITANT DISEASE AGGRAVATED [None]
  - ARRHYTHMIA [None]
  - THERAPEUTIC RESPONSE UNEXPECTED [None]
  - INCORRECT DRUG ADMINISTRATION DURATION [None]
